FAERS Safety Report 16705480 (Version 1)
Quarter: 2019Q4

REPORT INFORMATION
  Report Type: Spontaneous
  Country: US (occurrence: US)
  Receive Date: 20190814
  Receipt Date: 20190814
  Transmission Date: 20200122
  Serious: No
  Sender: FDA-Public Use
  Company Number: None

PATIENT
  Age: 40 Year
  Sex: Female

DRUGS (1)
  1. (FLUOROURACIL-TEVA) [Suspect]
     Active Substance: FLUOROURACIL
     Indication: ATTENTION DEFICIT/HYPERACTIVITY DISORDER
     Route: 048
     Dates: start: 20190612, end: 20190814

REACTIONS (8)
  - Hypersomnia [None]
  - Anxiety [None]
  - Product substitution issue [None]
  - Drug intolerance [None]
  - Irritability [None]
  - Product quality issue [None]
  - Therapeutic product effect decreased [None]
  - Apathy [None]

NARRATIVE: CASE EVENT DATE: 20190612
